FAERS Safety Report 7525877-2 (Version None)
Quarter: 2011Q2

REPORT INFORMATION
  Report Type: 
  Country: None (occurrence: None)
  Receive Date: 20110606
  Receipt Date: 20110519
  Transmission Date: 20111010
  Serious: Yes (Hospitalization, Congenital Anomaly)
  Sender: FDA-Public Use
  Company Number: A0930134A

PATIENT
  Sex: Female

DRUGS (1)
  1. PAXIL [Suspect]
     Indication: PRODUCT USED FOR UNKNOWN INDICATION
     Route: 064

REACTIONS (12)
  - PNEUMONIA [None]
  - PNEUMONIA ASPIRATION [None]
  - HYPOTENSION [None]
  - POLYHYDRAMNIOS [None]
  - SEPSIS [None]
  - LARGE FOR DATES BABY [None]
  - PERSISTENT FOETAL CIRCULATION [None]
  - CAESAREAN SECTION [None]
  - NEONATAL TACHYPNOEA [None]
  - RESPIRATORY DISTRESS [None]
  - CONGENITAL ANOMALY [None]
  - DRUG EXPOSURE DURING PREGNANCY [None]
